FAERS Safety Report 5782262-1 (Version None)
Quarter: 2008Q2

REPORT INFORMATION
  Report Type: 
  Country: None (occurrence: None)
  Receive Date: 20080623
  Receipt Date: 20080317
  Transmission Date: 20081010
  Serious: Yes (Other)
  Sender: FDA-Public Use
  Company Number: JP-PFIZER INC-2008020720

PATIENT
  Age: 63 Year
  Sex: Male

DRUGS (3)
  1. MIGLITOL TABLET [Suspect]
     Dosage: DAILY DOSE:225MG
     Route: 048
  2. HUMALOG MIX [Concomitant]
     Indication: TYPE 2 DIABETES MELLITUS
     Route: 058
  3. INSULIN LISPRO [Concomitant]
     Indication: TYPE 2 DIABETES MELLITUS
     Route: 058
     Dates: start: 20070822

REACTIONS (1)
  - HEPATIC ENZYME INCREASED [None]
